FAERS Safety Report 5035288-X (Version None)
Quarter: 2006Q2

REPORT INFORMATION
  Report Type: 
  Country: None (occurrence: None)
  Receive Date: 20060627
  Receipt Date: 20060621
  Transmission Date: 20061013
  Serious: Yes (Hospitalization)
  Sender: FDA-Public Use
  Company Number: 2006UW13203

PATIENT
  Age: 54 Year
  Sex: Female

DRUGS (6)
  1. CRESTOR [Suspect]
     Route: 048
  2. CRESTOR [Suspect]
     Route: 048
     Dates: end: 20060101
  3. ASPIRIN [Concomitant]
  4. ANXIETY MEDICATION [Concomitant]
  5. PRILOSEC OTC [Concomitant]
  6. LIPITOR [Concomitant]
     Route: 048

REACTIONS (4)
  - ANXIETY [None]
  - MYALGIA [None]
  - RHABDOMYOLYSIS [None]
  - TREMOR [None]
